FAERS Safety Report 16413522 (Version 1)
Quarter: 2019Q2

REPORT INFORMATION
  Report Type: Spontaneous
  Country: US (occurrence: US)
  Receive Date: 20190611
  Receipt Date: 20190611
  Transmission Date: 20190711
  Serious: No
  Sender: FDA-Public Use
  Company Number: US-009507513-1905USA012912

PATIENT
  Age: 44 Year
  Sex: Male

DRUGS (8)
  1. PREDNISONE. [Concomitant]
     Active Substance: PREDNISONE
     Indication: BENIGN FAMILIAL HAEMATURIA
     Dosage: 80 MG/DAY
  2. COZAAR [Suspect]
     Active Substance: LOSARTAN POTASSIUM
     Indication: RENAL FAILURE
  3. PREDNISONE. [Concomitant]
     Active Substance: PREDNISONE
     Indication: RENAL FAILURE
  4. COZAAR [Suspect]
     Active Substance: LOSARTAN POTASSIUM
     Indication: NEPHROTIC SYNDROME
  5. COZAAR [Suspect]
     Active Substance: LOSARTAN POTASSIUM
     Indication: FOCAL SEGMENTAL GLOMERULOSCLEROSIS
  6. PREDNISONE. [Concomitant]
     Active Substance: PREDNISONE
     Indication: FOCAL SEGMENTAL GLOMERULOSCLEROSIS
  7. PREDNISONE. [Concomitant]
     Active Substance: PREDNISONE
     Indication: NEPHROTIC SYNDROME
  8. COZAAR [Suspect]
     Active Substance: LOSARTAN POTASSIUM
     Indication: BENIGN FAMILIAL HAEMATURIA
     Dosage: 100 MG/DAY
     Route: 048

REACTIONS (1)
  - Product use in unapproved indication [Unknown]
